FAERS Safety Report 8259083-3 (Version None)
Quarter: 2012Q2

REPORT INFORMATION
  Report Type: 
  Country: None (occurrence: None)
  Receive Date: 20120404
  Receipt Date: 20120330
  Transmission Date: 20120825
  Serious: Yes (Other)
  Sender: FDA-Public Use
  Company Number: AT-PFIZER INC-2012082397

PATIENT
  Age: 55 Year
  Sex: Male

DRUGS (1)
  1. CYKLOKAPRON [Suspect]
     Indication: POST PROCEDURAL HAEMORRHAGE

REACTIONS (1)
  - CARDIOMYOPATHY [None]
